FAERS Safety Report 4319556-2 (Version None)
Quarter: 2004Q1

REPORT INFORMATION
  Report Type: 
  Country: None (occurrence: None)
  Receive Date: 20040315
  Receipt Date: 20040302
  Transmission Date: 20041129
  Serious: Yes (Hospitalization, Other)
  Sender: FDA-Public Use
  Company Number: 2004015892

PATIENT
  Age: 55 Year
  Sex: Female
  Weight: 50.5 kg

DRUGS (9)
  1. LITHIUM CARBONATE [Suspect]
     Indication: ILL-DEFINED DISORDER
  2. RISPERIDONE [Suspect]
     Indication: ILL-DEFINED DISORDER
  3. ENALAPRIL MALEATE [Concomitant]
  4. VALPROIC ACID [Concomitant]
  5. TRAZODONE HCL [Concomitant]
  6. PILOCARPINE (PILOCARPINE) [Concomitant]
  7. IRON (IRON) [Concomitant]
  8. CALCIUM (CALCIUM) [Concomitant]
  9. PHENYLPROPANOLAMINE W/GUAIFENESIN (GUAIFENESIN) [Concomitant]

REACTIONS (8)
  - BLOOD CREATININE INCREASED [None]
  - BLOOD SODIUM INCREASED [None]
  - CEREBRAL ATROPHY [None]
  - CONFUSIONAL STATE [None]
  - DEHYDRATION [None]
  - GAIT DISTURBANCE [None]
  - LETHARGY [None]
  - NEPHROGENIC DIABETES INSIPIDUS [None]
